FAERS Safety Report 9681057 (Version 1)
Quarter: 2013Q4

REPORT INFORMATION
  Report Type: Spontaneous
  Country: US (occurrence: None)
  Receive Date: 20131108
  Receipt Date: 20131108
  Transmission Date: 20140711
  Serious: Yes (Death, Other)
  Sender: FDA-Public Use
  Company Number: None

PATIENT
  Age: 65 Year
  Sex: Female
  Weight: 61.24 kg

DRUGS (1)
  1. AVASTIN [Suspect]
     Dosage: TWO MUCH

REACTIONS (3)
  - Cardiac failure [None]
  - Abnormal faeces [None]
  - Faeces discoloured [None]
